FAERS Safety Report 10335400 (Version 3)
Quarter: 2014Q3

REPORT INFORMATION
  Report Type: Report from Study
  Country: US (occurrence: US)
  Receive Date: 20140723
  Receipt Date: 20140807
  Transmission Date: 20150326
  Serious: Yes (Other)
  Sender: FDA-Public Use
  Company Number: US-BAXTER-2014BAX038353

PATIENT
  Age: 49 Year
  Sex: Female
  Weight: 59.1 kg

DRUGS (1)
  1. GAMMAGARD LIQUID [Suspect]
     Active Substance: HUMAN IMMUNOGLOBULIN G
     Indication: IMMUNOGLOBULIN THERAPY
     Route: 042
     Dates: start: 20140620, end: 20140709

REACTIONS (9)
  - Cystitis bacterial [Recovering/Resolving]
  - Fatigue [Not Recovered/Not Resolved]
  - Staphylococcus test positive [Recovering/Resolving]
  - Blister infected [Unknown]
  - Pain [Not Recovered/Not Resolved]
  - Feeling abnormal [Recovering/Resolving]
  - Gastrointestinal pain [Recovering/Resolving]
  - Simplex virus test positive [Unknown]
  - Headache [Recovering/Resolving]

NARRATIVE: CASE EVENT DATE: 20140623
